FAERS Safety Report 21046343 (Version 1)
Quarter: 2022Q3

REPORT INFORMATION
  Report Type: Other
  Country: FR (occurrence: FR)
  Receive Date: 20220706
  Receipt Date: 20220706
  Transmission Date: 20221027
  Serious: Yes (Hospitalization)
  Sender: FDA-Public Use
  Company Number: None

PATIENT

DRUGS (5)
  1. LANSOPRAZOLE [Suspect]
     Active Substance: LANSOPRAZOLE
     Indication: Peptic ulcer
     Dosage: 15 MILLIGRAM, QD
     Route: 048
     Dates: start: 20220502, end: 20220517
  2. LEVOFLOXACIN [Suspect]
     Active Substance: LEVOFLOXACIN
     Indication: Infection
     Dosage: 500 MILLIGRAM EVERY 2 DAYS
     Route: 048
     Dates: start: 20220511, end: 20220531
  3. CLINDAMYCIN [Suspect]
     Active Substance: CLINDAMYCIN
     Indication: Infection
     Dosage: 1200 MILLIGRAM EVERY 3 DAYS
     Route: 048
     Dates: start: 20220502, end: 20220511
  4. RIFAMPIN [Suspect]
     Active Substance: RIFAMPIN
     Indication: Infection
     Dosage: 600 MILLIGRAM EVERY 2 DAYS
     Route: 042
     Dates: start: 20220502, end: 20220511
  5. RIFAMPIN [Suspect]
     Active Substance: RIFAMPIN
     Dosage: 300 MILLIGRAM EVERY 2 DAYS
     Route: 048
     Dates: start: 20220511, end: 20220512

REACTIONS (1)
  - Vascular purpura [Recovering/Resolving]

NARRATIVE: CASE EVENT DATE: 20220513
